FAERS Safety Report 25713056 (Version 2)
Quarter: 2025Q4

REPORT INFORMATION
  Report Type: Spontaneous
  Country: US (occurrence: None)
  Receive Date: 20250821
  Receipt Date: 20251007
  Transmission Date: 20260117
  Serious: Yes (Other)
  Sender: ENDO
  Company Number: US-ENDO USA, INC.-2025-001808

PATIENT
  Sex: Male
  Weight: 79.365 kg

DRUGS (4)
  1. XIAFLEX [Suspect]
     Active Substance: COLLAGENASE CLOSTRIDIUM HISTOLYTICUM
     Indication: Peyronie^s disease
     Dosage: 0.58 MILLIGRAM, UNKNOWN (1 X ON 2 DAYS, 1-3 DAYS APART EVERY 6 WEEKS)
     Dates: start: 20250731, end: 20250731
  2. XIAFLEX [Suspect]
     Active Substance: COLLAGENASE CLOSTRIDIUM HISTOLYTICUM
     Dosage: 0.58 MILLIGRAM, UNKNOWN (1 X ON 2 DAYS, 1-3 DAYS APART EVERY 6 WEEKS)
     Dates: start: 20250721, end: 20250721
  3. CIALIS [Concomitant]
     Active Substance: TADALAFIL
     Indication: Erectile dysfunction
     Dosage: UNK UNKNOWN, UNKNOWN
     Route: 065
  4. TESTOSTERONE [Concomitant]
     Active Substance: TESTOSTERONE
     Indication: Hypogonadism
     Dosage: UNK UNKNOWN, WEEKLY
     Route: 065

REACTIONS (9)
  - Hypertension [Not Recovered/Not Resolved]
  - Fatigue [Unknown]
  - Abdominal pain [Unknown]
  - Discomfort [Unknown]
  - Tremor [Unknown]
  - Feeling of body temperature change [Unknown]
  - Headache [Unknown]
  - Back pain [Unknown]
  - Inappropriate schedule of product administration [Recovered/Resolved]

NARRATIVE: CASE EVENT DATE: 20250101
